FAERS Safety Report 6527295-2 (Version None)
Quarter: 2010Q1

REPORT INFORMATION
  Report Type: 
  Country: None (occurrence: None)
  Receive Date: 20100104
  Receipt Date: 20100104
  Transmission Date: 20100710
  Serious: Yes (Hospitalization, Other)
  Sender: FDA-Public Use
  Company Number: None

PATIENT
  Age: 61 Year
  Sex: Female
  Weight: 68 kg

DRUGS (7)
  1. DESFLURANE [Suspect]
     Indication: SURGERY
     Dosage: APPROXIMATELY 1 HOUR CONTINUOUS INHAL
     Route: 055
     Dates: start: 20090811, end: 20090811
  2. PROPOFOL [Concomitant]
  3. SUCCINYLCHOLINE [Concomitant]
  4. FENTANYL-100 [Concomitant]
  5. MIDAZOLAM HCL [Concomitant]
  6. LIDOCAINE [Concomitant]
  7. ONDANSETRON [Concomitant]

REACTIONS (6)
  - BILIRUBIN CONJUGATED INCREASED [None]
  - BLOOD ALKALINE PHOSPHATASE INCREASED [None]
  - HEPATOTOXICITY [None]
  - LIVER FUNCTION TEST ABNORMAL [None]
  - PROCEDURAL HYPOTENSION [None]
  - SLEEP DISORDER [None]
